FAERS Safety Report 24133527 (Version 3)
Quarter: 2024Q3

REPORT INFORMATION
  Report Type: Spontaneous
  Country: DE (occurrence: DE)
  Receive Date: 20240724
  Receipt Date: 20240812
  Transmission Date: 20241017
  Serious: Yes (Hospitalization, Other)
  Sender: PFIZER
  Company Number: DE-BAXTER-2024BAX021324

PATIENT
  Age: 17 Year
  Sex: Female
  Weight: 63.9 kg

DRUGS (40)
  1. INOTUZUMAB OZOGAMICIN [Suspect]
     Active Substance: INOTUZUMAB OZOGAMICIN
     Indication: Leukaemia recurrent
     Dosage: 0.94 MG, WEEKLY
     Route: 042
     Dates: start: 20240422, end: 20240506
  2. METHOTREXATE SODIUM [Suspect]
     Active Substance: METHOTREXATE SODIUM
     Indication: Chemotherapy
     Dosage: 1790 MG ONCE
     Route: 042
     Dates: start: 20240522, end: 20240524
  3. CYCLOPHOSPHAMIDE [Suspect]
     Active Substance: CYCLOPHOSPHAMIDE
     Indication: Chemotherapy
     Dosage: 358 MG, TWICE DAILY
     Route: 042
     Dates: start: 20240523, end: 20240525
  4. CYTARABINE [Suspect]
     Active Substance: CYTARABINE
     Indication: Chemotherapy
     Dosage: 3580 MG, TWICE
     Route: 042
     Dates: start: 20240526, end: 20240526
  5. DEXAMETHASONE [Suspect]
     Active Substance: DEXAMETHASONE
     Indication: Chemotherapy
     Dosage: 9 MG, TWICE DAILY
     Route: 042
     Dates: start: 20240522, end: 20240527
  6. PEGASPARGASE [Suspect]
     Active Substance: PEGASPARGASE
     Indication: Chemotherapy
     Dosage: 1790, SINGLE (AS REPORTED)
     Route: 042
     Dates: start: 20240527, end: 20240527
  7. VINCRISTINE SULFATE [Suspect]
     Active Substance: VINCRISTINE SULFATE
     Indication: Chemotherapy
     Dosage: 2 MG, D1 AND D6
     Route: 042
     Dates: start: 20240522, end: 20240527
  8. ALLOPURINOL [Concomitant]
     Active Substance: ALLOPURINOL
     Indication: Leukaemia recurrent
     Dosage: UNK
     Dates: start: 20240416, end: 20240426
  9. AMBISOME [Concomitant]
     Active Substance: AMPHOTERICIN B
     Indication: Antifungal prophylaxis
     Dosage: UNK
     Route: 042
     Dates: start: 20240419, end: 20240507
  10. AMBISOME [Concomitant]
     Active Substance: AMPHOTERICIN B
     Indication: Leukaemia recurrent
  11. CASPOFUNGIN [Concomitant]
     Active Substance: CASPOFUNGIN
     Indication: Leukaemia recurrent
     Dosage: UNK
     Dates: start: 20240501, end: 20240501
  12. CASPOFUNGIN [Concomitant]
     Active Substance: CASPOFUNGIN
     Dosage: UNK
     Dates: start: 20240502, end: 20240506
  13. COTRIM [Concomitant]
     Active Substance: SULFAMETHOXAZOLE\TRIMETHOPRIM
     Indication: Infection prophylaxis
     Dosage: UNK
     Route: 048
  14. COTRIMOXAZOLE [Concomitant]
     Active Substance: SULFAMETHOXAZOLE\TRIMETHOPRIM
     Indication: Leukaemia recurrent
     Dosage: UNK
     Dates: start: 20240420, end: 20240505
  15. DIMENHYDRINATE [Concomitant]
     Active Substance: DIMENHYDRINATE
     Indication: Leukaemia recurrent
     Dosage: UNK
     Dates: start: 20240426, end: 20240426
  16. FUROSEMIDE [Concomitant]
     Active Substance: FUROSEMIDE
     Indication: Leukaemia recurrent
     Dosage: UNK
     Dates: start: 20240424, end: 20240424
  17. KALIUM [POTASSIUM CITRATE] [Concomitant]
     Indication: Leukaemia recurrent
     Dosage: UNK
     Dates: start: 20240428, end: 20240503
  18. LACTULOSE [Concomitant]
     Active Substance: LACTULOSE
     Indication: Leukaemia recurrent
     Dosage: UNK
     Dates: start: 20240503, end: 20240503
  19. LACTULOSE [Concomitant]
     Active Substance: LACTULOSE
     Dosage: UNK
     Dates: start: 20240506, end: 20240506
  20. LACTULOSE [Concomitant]
     Active Substance: LACTULOSE
     Dosage: UNK
     Dates: start: 20240507, end: 20240507
  21. BISACODYL [Concomitant]
     Active Substance: BISACODYL
     Indication: Leukaemia recurrent
     Dosage: UNK
     Dates: start: 20240427, end: 20240428
  22. POLYETHYLENE GLYCOLS [Concomitant]
     Active Substance: POLYETHYLENE GLYCOLS
     Indication: Leukaemia recurrent
     Dosage: UNK
     Dates: start: 20240426, end: 20240426
  23. METAMIZOL [Concomitant]
     Active Substance: METAMIZOLE SODIUM
     Indication: Leukaemia recurrent
     Dosage: UNK
     Dates: start: 20240422, end: 20240422
  24. OMEPRAZOLE [Concomitant]
     Active Substance: OMEPRAZOLE
     Indication: Leukaemia recurrent
     Dosage: UNK
     Dates: start: 20240418, end: 20240501
  25. ONDANSETRON [Concomitant]
     Active Substance: ONDANSETRON
     Indication: Leukaemia recurrent
     Dosage: UNK
     Dates: start: 20240429, end: 20240429
  26. ACETAMINOPHEN [Concomitant]
     Active Substance: ACETAMINOPHEN
     Indication: Leukaemia recurrent
     Dosage: UNK
     Dates: start: 20240422, end: 20240422
  27. ACETAMINOPHEN [Concomitant]
     Active Substance: ACETAMINOPHEN
     Dosage: UNK
     Dates: start: 20240427, end: 20240427
  28. ACETAMINOPHEN [Concomitant]
     Active Substance: ACETAMINOPHEN
     Dosage: UNK
     Dates: start: 20240428, end: 20240428
  29. ACETAMINOPHEN [Concomitant]
     Active Substance: ACETAMINOPHEN
     Dosage: UNK
     Dates: start: 20240429, end: 20240501
  30. ACETAMINOPHEN [Concomitant]
     Active Substance: ACETAMINOPHEN
     Dosage: UNK
     Dates: start: 20240502, end: 20240502
  31. ACETAMINOPHEN [Concomitant]
     Active Substance: ACETAMINOPHEN
     Dosage: UNK
     Dates: start: 20240503, end: 20240503
  32. ACETAMINOPHEN [Concomitant]
     Active Substance: ACETAMINOPHEN
     Dosage: UNK
     Dates: start: 20240504, end: 20240504
  33. RINGERS SOLUTION [Concomitant]
     Active Substance: CALCIUM CHLORIDE\POTASSIUM CHLORIDE\SODIUM CHLORIDE
     Indication: Leukaemia recurrent
     Dosage: UNK
     Dates: start: 20240423, end: 20240423
  34. PIPERACILLIN SODIUM\TAZOBACTAM SODIUM [Concomitant]
     Active Substance: PIPERACILLIN SODIUM\TAZOBACTAM SODIUM
     Indication: Leukaemia recurrent
     Dosage: UNK
     Dates: start: 20240422, end: 20240422
  35. PIPERACILLIN SODIUM\TAZOBACTAM SODIUM [Concomitant]
     Active Substance: PIPERACILLIN SODIUM\TAZOBACTAM SODIUM
     Dosage: UNK
     Dates: start: 20240423, end: 20240502
  36. PIPERACILLIN SODIUM\TAZOBACTAM SODIUM [Concomitant]
     Active Substance: PIPERACILLIN SODIUM\TAZOBACTAM SODIUM
     Dosage: UNK
     Dates: start: 20240503, end: 20240503
  37. VANCOMYCIN [Concomitant]
     Active Substance: VANCOMYCIN
     Indication: Leukaemia recurrent
     Dosage: UNK
     Dates: start: 20240426, end: 20240426
  38. VANCOMYCIN [Concomitant]
     Active Substance: VANCOMYCIN
     Dosage: UNK
     Dates: start: 20240427, end: 20240427
  39. VANCOMYCIN [Concomitant]
     Active Substance: VANCOMYCIN
     Dosage: UNK
     Dates: start: 20240428, end: 20240501
  40. VANCOMYCIN [Concomitant]
     Active Substance: VANCOMYCIN
     Dosage: UNK
     Dates: start: 20240502, end: 20240502

REACTIONS (3)
  - Bone marrow failure [Recovered/Resolved]
  - Mucosal inflammation [Recovered/Resolved]
  - Off label use [Unknown]

NARRATIVE: CASE EVENT DATE: 20240422
